FAERS Safety Report 18769978 (Version 2)
Quarter: 2021Q1

REPORT INFORMATION
  Report Type: Report from Study
  Country: FR (occurrence: FR)
  Receive Date: 20210121
  Receipt Date: 20210326
  Transmission Date: 20210419
  Serious: Yes (Hospitalization, Other)
  Sender: FDA-Public Use
  Company Number: FR-PFIZER INC-2021019365

PATIENT
  Age: 65 Year
  Sex: Male
  Weight: 103 kg

DRUGS (4)
  1. ATEZOLIZUMAB. [Suspect]
     Active Substance: ATEZOLIZUMAB
     Indication: HEPATOCELLULAR CARCINOMA
     Dosage: 1200 MG, EVERY 3 WEEKS (CYCLE 1)
     Route: 041
     Dates: start: 20200911
  2. ATEZOLIZUMAB. [Suspect]
     Active Substance: ATEZOLIZUMAB
     Dosage: 1200 MG, EVERY 3 WEEKS (CYCLE 2)
     Route: 041
     Dates: start: 20201002
  3. BEVACIZUMAB. [Suspect]
     Active Substance: BEVACIZUMAB
     Indication: HEPATOCELLULAR CARCINOMA
     Dosage: 1545 MG, EVERY 3 WEEKS (CYCLE 1)
     Route: 042
     Dates: start: 20200911
  4. BEVACIZUMAB. [Suspect]
     Active Substance: BEVACIZUMAB
     Dosage: 1545 MG, EVERY 3 WEEKS (CYCLE 2)
     Route: 042
     Dates: start: 20201002

REACTIONS (3)
  - Mouth haemorrhage [Not Recovered/Not Resolved]
  - Ischaemic stroke [Recovered/Resolved]
  - Blood thyroid stimulating hormone increased [Not Recovered/Not Resolved]
